FAERS Safety Report 11758122 (Version 1)
Quarter: 2015Q4

REPORT INFORMATION
  Report Type: Report from Study
  Country: US (occurrence: None)
  Receive Date: 20151117
  Receipt Date: 20151117
  Transmission Date: 20160304
  Serious: Yes (Other)
  Sender: FDA-Public Use
  Company Number: 2014US009813

PATIENT
  Age: 66 Year
  Weight: 108.8 kg

DRUGS (3)
  1. ZITHROMYCIN (AZITHROMYCIN) [Concomitant]
  2. GLASSIA [Suspect]
     Active Substance: .ALPHA.1-PROTEINASE INHIBITOR HUMAN
     Indication: ALPHA-1 ANTI-TRYPSIN DEFICIENCY
     Dosage: 6300 MG OVER 70 MINUTES, WEEKLY, INTRAVENOUS
     Route: 042
     Dates: start: 20141020
  3. SPIRIVA [Concomitant]
     Active Substance: TIOTROPIUM BROMIDE MONOHYDRATE

REACTIONS (4)
  - Rales [None]
  - Cough [None]
  - Dyspnoea [None]
  - Headache [None]

NARRATIVE: CASE EVENT DATE: 20141021
